FAERS Safety Report 12547523 (Version 1)
Quarter: 2016Q3

REPORT INFORMATION
  Report Type: Spontaneous
  Country: US (occurrence: US)
  Receive Date: 20160712
  Receipt Date: 20160712
  Transmission Date: 20161109
  Serious: Yes (Death)
  Sender: FDA-Public Use
  Company Number: US-ROCHE-1792443

PATIENT
  Sex: Female

DRUGS (2)
  1. XELODA [Suspect]
     Active Substance: CAPECITABINE
     Indication: PRODUCT USED FOR UNKNOWN INDICATION
     Dosage: IN THE AM
     Route: 048
     Dates: start: 20151229
  2. XELODA [Suspect]
     Active Substance: CAPECITABINE
     Dosage: IN THE PM?7 ON 7 OFF
     Route: 048

REACTIONS (1)
  - Death [Fatal]
